FAERS Safety Report 21111337 (Version 1)
Quarter: 2022Q3

REPORT INFORMATION
  Report Type: Spontaneous
  Country: US (occurrence: US)
  Receive Date: 20220721
  Receipt Date: 20220721
  Transmission Date: 20221026
  Serious: Yes (Hospitalization, Other)
  Sender: FDA-Public Use
  Company Number: US-THERAPEUTICSMD-2022TMD00726

PATIENT
  Sex: Female
  Weight: 109.75 kg

DRUGS (2)
  1. IMVEXXY [Suspect]
     Active Substance: ESTRADIOL
     Indication: Libido disorder
     Dosage: 1 DOSAGE UNITS, 2X/WEEK
     Route: 067
     Dates: start: 2020, end: 202204
  2. IMVEXXY [Suspect]
     Active Substance: ESTRADIOL
     Indication: Vulvovaginal dryness

REACTIONS (2)
  - Intervertebral disc disorder [Not Recovered/Not Resolved]
  - Infection [Unknown]

NARRATIVE: CASE EVENT DATE: 20220101
